FAERS Safety Report 8805192 (Version 1)
Quarter: 2012Q4

REPORT INFORMATION
  Report Type: Spontaneous
  Country: DK (occurrence: None)
  Receive Date: 20120917
  Receipt Date: 20120917
  Transmission Date: 20130627
  Serious: Yes (Disabling)
  Sender: FDA-Public Use
  Company Number: 2012MA011087

PATIENT
  Age: 70 Year
  Sex: Female

DRUGS (1)
  1. ACETAMINOPHEN + CODEINE PHOSPHATE [Suspect]
     Dates: start: 20120824

REACTIONS (3)
  - Nausea [None]
  - Hypotension [None]
  - Syncope [None]
